FAERS Safety Report 9857864 (Version 3)
Quarter: 2014Q1

REPORT INFORMATION
  Report Type: Spontaneous
  Country: US (occurrence: US)
  Receive Date: 20140131
  Receipt Date: 20140324
  Transmission Date: 20141002
  Serious: Yes (Hospitalization, Other)
  Sender: FDA-Public Use
  Company Number: US-MERCK-1401USA012396

PATIENT
  Age: 54 Year
  Sex: Female
  Weight: 57.14 kg

DRUGS (14)
  1. ZOLINZA [Suspect]
     Indication: NON-SMALL CELL LUNG CANCER
     Dosage: 100 MG,Q M-W-F
     Route: 048
     Dates: start: 20121202, end: 20140120
  2. CARBOPLATIN [Suspect]
     Indication: NON-SMALL CELL LUNG CANCER
     Dosage: AUC 5, Q 3 WEEKS
     Route: 042
     Dates: start: 20131202, end: 20140113
  3. PEMETREXED DISODIUM [Suspect]
     Indication: NON-SMALL CELL LUNG CANCER
     Dosage: 500 MG/M2, Q 3 WEEKS
     Route: 042
     Dates: start: 20131202, end: 20140113
  4. AMBIEN [Concomitant]
     Indication: INSOMNIA
     Dosage: 10 MG, QHS
     Route: 048
     Dates: start: 20131031
  5. DURAGESIC [Concomitant]
     Indication: PAIN
     Dosage: 25 MCG/HR, Q3D
  6. ZOFRAN [Concomitant]
     Indication: NAUSEA
     Dosage: 8 MG, Q8H PRN
     Route: 048
     Dates: start: 20131120
  7. FOLIC ACID [Concomitant]
     Dosage: 1 MG, QD
     Route: 048
     Dates: start: 20131120
  8. COMPAZINE [Concomitant]
     Indication: NAUSEA
     Dosage: 10 MG, Q6H PRN
  9. OXYCODONE [Concomitant]
     Dosage: 5 MG, Q4H PRN
     Route: 048
  10. DEXAMETHASONE [Concomitant]
     Indication: PROPHYLACTIC CHEMOTHERAPY
     Dosage: 4 MG, BID DAY PRIOR AND DAY AFTER CHEMOTHERAPY
  11. NICODERM CQ [Concomitant]
     Dosage: 14 MG/24 HRS
  12. FIORICET [Concomitant]
     Indication: MIGRAINE
     Dosage: 1 TABLET, Q4H PRN
     Route: 048
     Dates: start: 2013
  13. ATIVAN [Concomitant]
     Indication: ANXIETY
     Dosage: 0.5 UNK, UNK
     Route: 048
     Dates: start: 2014
  14. TYLENOL [Concomitant]
     Indication: PAIN
     Dosage: 325 MG, PRN
     Route: 048
     Dates: start: 201311

REACTIONS (13)
  - Electrolyte imbalance [Recovered/Resolved]
  - Nausea [Recovered/Resolved]
  - Vomiting [Recovered/Resolved]
  - Neutrophil count decreased [Unknown]
  - Platelet count decreased [Unknown]
  - Hepatitis C [Unknown]
  - Chronic obstructive pulmonary disease [Unknown]
  - Asthma [Unknown]
  - Female sterilisation [Unknown]
  - Hernia repair [Unknown]
  - Early satiety [Unknown]
  - Productive cough [Unknown]
  - Radiation oesophagitis [Unknown]
